FAERS Safety Report 13762948 (Version 1)
Quarter: 2017Q3

REPORT INFORMATION
  Report Type: Spontaneous
  Country: US (occurrence: US)
  Receive Date: 20170718
  Receipt Date: 20170718
  Transmission Date: 20171127
  Serious: Yes (Hospitalization)
  Sender: FDA-Public Use
  Company Number: None

PATIENT
  Sex: Female

DRUGS (1)
  1. ETODOLAC ER [Suspect]
     Active Substance: ETODOLAC
     Dosage: ?          OTHER DOSE:MG;?
     Route: 048
     Dates: start: 20170422, end: 20170430

REACTIONS (13)
  - Influenza like illness [None]
  - Abdominal pain [None]
  - Nausea [None]
  - Asthenia [None]
  - Flatulence [None]
  - Weight decreased [None]
  - Muscle spasms [None]
  - Diarrhoea [None]
  - Abdominal distension [None]
  - Chest pain [None]
  - Decreased appetite [None]
  - Fatigue [None]
  - Hypertension [None]

NARRATIVE: CASE EVENT DATE: 20170501
